FAERS Safety Report 4393075-X (Version None)
Quarter: 2004Q3

REPORT INFORMATION
  Report Type: 
  Country: None (occurrence: None)
  Receive Date: 20040708
  Receipt Date: 20040507
  Transmission Date: 20050211
  Serious: Yes (Hospitalization)
  Sender: FDA-Public Use
  Company Number: ES-AMGEN-US077112

PATIENT
  Sex: Male

DRUGS (8)
  1. ENBREL [Suspect]
     Indication: PSORIATIC ARTHROPATHY
     Route: 058
     Dates: start: 20040331, end: 20040501
  2. METHOTREXATE [Suspect]
     Route: 048
     Dates: start: 19971105, end: 20040501
  3. DEFLAZACORT [Concomitant]
     Route: 048
     Dates: start: 19970630
  4. ARAVA [Concomitant]
     Route: 048
     Dates: start: 20021203, end: 20040331
  5. DICLOFENAC SODIUM [Concomitant]
  6. OMEPRAZOLE [Concomitant]
  7. MEDICINALPRODUCT NOT SPECIFIED BY SENDER [Concomitant]
  8. SULFASALAZINE [Concomitant]

REACTIONS (8)
  - BONE MARROW DEPRESSION [None]
  - DIARRHOEA [None]
  - MALAISE [None]
  - MUCOSAL INFLAMMATION [None]
  - OROPHARYNGITIS FUNGAL [None]
  - PANCYTOPENIA [None]
  - PYREXIA [None]
  - RECTAL HAEMORRHAGE [None]
